FAERS Safety Report 5255790-5 (Version None)
Quarter: 2007Q1

REPORT INFORMATION
  Report Type: 
  Country: None (occurrence: None)
  Receive Date: 20070228
  Receipt Date: 20070216
  Transmission Date: 20070707
  Serious: No
  Sender: FDA-Public Use
  Company Number: 2007AP000187

PATIENT
  Sex: Female

DRUGS (2)
  1. PAROXETINE HCL [Suspect]
  2. INSULIN (INSULIN) [Concomitant]

REACTIONS (12)
  - ALCOHOLISM [None]
  - APATHY [None]
  - APPETITE DISORDER [None]
  - DEPRESSED MOOD [None]
  - DISTURBANCE IN ATTENTION [None]
  - DRUG WITHDRAWAL SYNDROME [None]
  - INITIAL INSOMNIA [None]
  - INTENTIONAL SELF-INJURY [None]
  - MALAISE [None]
  - SELF-MEDICATION [None]
  - SUICIDAL IDEATION [None]
  - SUICIDE ATTEMPT [None]
